FAERS Safety Report 23587336 (Version 1)
Quarter: 2024Q1

REPORT INFORMATION
  Report Type: Spontaneous
  Country: TR (occurrence: TR)
  Receive Date: 20240301
  Receipt Date: 20240301
  Transmission Date: 20240410
  Serious: Yes (Death, Other)
  Sender: FDA-Public Use
  Company Number: TR-BoehringerIngelheim-2024-BI-010985

PATIENT
  Age: 57 Year
  Sex: Female

DRUGS (6)
  1. AFATINIB [Suspect]
     Active Substance: AFATINIB
     Indication: Non-small cell lung cancer
     Dosage: DAILY DOSE: 40.0 MILLIGRAM(S)
     Dates: start: 202002
  2. AFATINIB [Suspect]
     Active Substance: AFATINIB
     Dosage: DAILY DOSE: 30.0 MILLIGRAM(S)
  3. OSIMERTINIB [Concomitant]
     Active Substance: OSIMERTINIB
     Indication: Drug therapy
     Dates: start: 202008
  4. doublet paclitaxel [Concomitant]
     Indication: Drug therapy
     Dates: start: 202104
  5. NIVOLUMAB [Concomitant]
     Active Substance: NIVOLUMAB
     Indication: Drug therapy
  6. CATEQUENTINIB [Concomitant]
     Active Substance: CATEQUENTINIB
     Indication: Drug therapy

REACTIONS (3)
  - Malignant neoplasm progression [Fatal]
  - Metastases to liver [Unknown]
  - Mucocutaneous disorder [Unknown]

NARRATIVE: CASE EVENT DATE: 20210101
